FAERS Safety Report 8044821-5 (Version None)
Quarter: 2012Q1

REPORT INFORMATION
  Report Type: 
  Country: None (occurrence: None)
  Receive Date: 20120113
  Receipt Date: 20120106
  Transmission Date: 20120608
  Serious: Yes (Hospitalization)
  Sender: FDA-Public Use
  Company Number: US-BAYER-2011-064106

PATIENT
  Age: 44 Year
  Sex: Female
  Weight: 63.492 kg

DRUGS (11)
  1. KETOROLAC TROMETHAMINE [Concomitant]
     Dosage: 30 MG, UNK
     Route: 042
     Dates: start: 20100312
  2. DROSPIRENONE AND ETHINYL ESTRADIOL [Suspect]
  3. DROSPIRENONE AND ETHINYL ESTRADIOL [Suspect]
  4. IBUPROFEN [Concomitant]
     Dosage: UNK
     Dates: start: 20100301
  5. VERSED [Concomitant]
     Dosage: UNK
     Dates: start: 20100312
  6. PROPOFOL [Concomitant]
     Dosage: UNK
     Dates: start: 20100312
  7. LIDOCAINE [Concomitant]
     Dosage: 13 ML, UNK
  8. MARCAINE [Concomitant]
     Dosage: 6 ML, UNK
  9. DEXAMETHASONE SODIUM PHOSPHATE [Concomitant]
     Dosage: 0.5 ML, UNK
  10. DROSPIRENONE AND ETHINYL ESTRADIOL [Suspect]
     Indication: CONTRACEPTION
     Dosage: UNK
     Route: 048
     Dates: start: 20091001, end: 20100401
  11. MACROBID [Concomitant]
     Dosage: 100 MG, BID
     Dates: start: 20100312, end: 20100316

REACTIONS (4)
  - DEEP VEIN THROMBOSIS [None]
  - POST THROMBOTIC SYNDROME [None]
  - PAIN [None]
  - PULMONARY EMBOLISM [None]
